FAERS Safety Report 11379317 (Version 1)
Quarter: 2015Q3

REPORT INFORMATION
  Report Type: Spontaneous
  Country: US (occurrence: US)
  Receive Date: 20150811
  Receipt Date: 20150811
  Transmission Date: 20151125
  Serious: No
  Sender: FDA-Public Use
  Company Number: US-ELI_LILLY_AND_COMPANY-US200907003917

PATIENT
  Sex: Male

DRUGS (1)
  1. CIALIS [Suspect]
     Active Substance: TADALAFIL
     Dosage: 7.5 MG, UNKNOWN
     Route: 065
     Dates: start: 2008

REACTIONS (2)
  - Drug effect delayed [Not Recovered/Not Resolved]
  - Erectile dysfunction [Not Recovered/Not Resolved]
